FAERS Safety Report 25896059 (Version 1)
Quarter: 2025Q4

REPORT INFORMATION
  Report Type: Spontaneous
  Country: EU (occurrence: EU)
  Receive Date: 20251008
  Receipt Date: 20251008
  Transmission Date: 20260117
  Serious: Yes (Other)
  Sender: BAUSCH AND LOMB
  Company Number: EU-BAUSCH-BH-2025-018270

PATIENT
  Age: 53 Year
  Sex: Female

DRUGS (4)
  1. PYRIDOSTIGMINE [Suspect]
     Active Substance: PYRIDOSTIGMINE
     Indication: Congenital myasthenic syndrome
     Route: 065
  2. ALBUTEROL [Concomitant]
     Active Substance: ALBUTEROL
     Indication: Congenital myasthenic syndrome
  3. FUROSEMIDE [Concomitant]
     Active Substance: FUROSEMIDE
     Indication: Hyperkalaemia
  4. SORBISTERITE [Concomitant]
     Indication: Hyperkalaemia

REACTIONS (2)
  - Congenital myasthenic syndrome [Unknown]
  - Condition aggravated [Unknown]
